FAERS Safety Report 12716879 (Version 1)
Quarter: 2016Q3

REPORT INFORMATION
  Report Type: Spontaneous
  Country: IN (occurrence: IN)
  Receive Date: 20160906
  Receipt Date: 20160906
  Transmission Date: 20161109
  Serious: Yes (Life-Threatening, Hospitalization)
  Sender: FDA-Public Use
  Company Number: IN-NORTH CREEK PHARMACEUTICALS LLC-2016VTS00066

PATIENT
  Age: 30 Year
  Sex: Female

DRUGS (1)
  1. DAPSONE. [Suspect]
     Active Substance: DAPSONE
     Indication: DERMATITIS HERPETIFORMIS
     Dosage: 100 MG, 1X/DAY
     Route: 065

REACTIONS (5)
  - Cholestatic liver injury [Recovered/Resolved]
  - Aplasia pure red cell [Recovered/Resolved]
  - Hypersensitivity [Recovered/Resolved]
  - Hepatotoxicity [None]
  - Drug reaction with eosinophilia and systemic symptoms [None]
